FAERS Safety Report 11336979 (Version 1)
Quarter: 2015Q3

REPORT INFORMATION
  Report Type: Spontaneous
  Country: GB (occurrence: GB)
  Receive Date: 20150804
  Receipt Date: 20150804
  Transmission Date: 20151125
  Serious: Yes (Life-Threatening)
  Sender: FDA-Public Use
  Company Number: GB-B.I. PHARMACEUTICALS,INC./RIDGEFIELD-2015-BI-42120GD

PATIENT
  Age: 31 Year
  Sex: Male

DRUGS (3)
  1. PROPOFOL. [Concomitant]
     Active Substance: PROPOFOL
     Indication: SEDATIVE THERAPY
     Route: 065
  2. ALFENTANIL. [Concomitant]
     Active Substance: ALFENTANIL
     Indication: SEDATIVE THERAPY
     Route: 065
  3. CATAPRES [Suspect]
     Active Substance: CLONIDINE HYDROCHLORIDE
     Indication: SEDATIVE THERAPY
     Dosage: WEANED DOWN FROM 120 MCG/H TO NIL OVER A 10 H PERIOD
     Route: 065

REACTIONS (4)
  - Acute pulmonary oedema [Recovered/Resolved]
  - Product use issue [Unknown]
  - Drug withdrawal syndrome [Recovered/Resolved]
  - Acute respiratory distress syndrome [Recovered/Resolved]
